FAERS Safety Report 6379551-9 (Version None)
Quarter: 2009Q3

REPORT INFORMATION
  Report Type: 
  Country: None (occurrence: None)
  Receive Date: 20090928
  Receipt Date: 20090922
  Transmission Date: 20100115
  Serious: Yes (Other)
  Sender: FDA-Public Use
  Company Number: BR-BRISTOL-MYERS SQUIBB COMPANY-14793509

PATIENT
  Sex: Female

DRUGS (1)
  1. PACLITAXEL [Suspect]
     Dosage: RECEIVED 2 INFUSIONS
     Route: 042

REACTIONS (1)
  - VASCULITIS [None]
